FAERS Safety Report 15235047 (Version 1)
Quarter: 2018Q3

REPORT INFORMATION
  Report Type: Spontaneous
  Country: ES (occurrence: ES)
  Receive Date: 20180803
  Receipt Date: 20180803
  Transmission Date: 20181010
  Serious: Yes (Death, Hospitalization)
  Sender: FDA-Public Use
  Company Number: ES-TEVA-2018-ES-933348

PATIENT
  Age: 69 Year
  Sex: Female
  Weight: 45 kg

DRUGS (2)
  1. CAPECITABINA [Suspect]
     Active Substance: CAPECITABINE
     Indication: COLON NEOPLASM
     Dosage: XELOX SCHEME
     Dates: start: 20180221, end: 20180302
  2. OXALIPLATINO [Suspect]
     Active Substance: OXALIPLATIN
     Indication: COLON NEOPLASM
     Dosage: XELOX SCHEME
     Dates: start: 20180221, end: 20180221

REACTIONS (2)
  - Peritonitis [Recovered/Resolved with Sequelae]
  - Colitis ischaemic [Recovered/Resolved with Sequelae]

NARRATIVE: CASE EVENT DATE: 20180404
